FAERS Safety Report 18158131 (Version 2)
Quarter: 2020Q3

REPORT INFORMATION
  Report Type: Report from Study
  Country: JP (occurrence: JP)
  Receive Date: 20200817
  Receipt Date: 20200915
  Transmission Date: 20201103
  Serious: Yes (Death)
  Sender: FDA-Public Use
  Company Number: JP-PFIZER INC-2016355409

PATIENT
  Age: 64 Year
  Sex: Male
  Weight: 55 kg

DRUGS (2)
  1. XELJANZ [Suspect]
     Active Substance: TOFACITINIB CITRATE
     Indication: RHEUMATOID ARTHRITIS
     Dosage: 5 MG, 2X/DAY
     Route: 048
     Dates: start: 20150213, end: 20150817
  2. METOLATE [Suspect]
     Active Substance: METHOTREXATE
     Indication: RHEUMATOID ARTHRITIS
     Dosage: 16 MG, WEEKLY
     Route: 048
     Dates: start: 20150213, end: 20150818

REACTIONS (1)
  - Lymphoproliferative disorder [Fatal]

NARRATIVE: CASE EVENT DATE: 201505
